FAERS Safety Report 7368327-1 (Version None)
Quarter: 2011Q1

REPORT INFORMATION
  Report Type: 
  Country: None (occurrence: None)
  Receive Date: 20110323
  Receipt Date: 20110321
  Transmission Date: 20110831
  Serious: No
  Sender: FDA-Public Use
  Company Number: US-PFIZER INC-2011062311

PATIENT
  Sex: Male

DRUGS (2)
  1. LIPITOR [Suspect]
     Dosage: 20 MG, UNK
     Route: 048
  2. AMIODARONE HCL [Interacting]
     Dosage: UNK

REACTIONS (2)
  - DRUG INTERACTION [None]
  - LIVER FUNCTION TEST ABNORMAL [None]
